FAERS Safety Report 9032348 (Version 1)
Quarter: 2013Q1

REPORT INFORMATION
  Report Type: Report from Study
  Country: BR (occurrence: BR)
  Receive Date: 20130125
  Receipt Date: 20130125
  Transmission Date: 20140127
  Serious: Yes (Other)
  Sender: FDA-Public Use
  Company Number: BR-US-EMD SERONO, INC.-7189224

PATIENT
  Sex: Male

DRUGS (3)
  1. REBIF [Suspect]
     Indication: MULTIPLE SCLEROSIS
     Route: 058
     Dates: start: 20060731
  2. BERTASEC (BETASERC) [Concomitant]
     Indication: PRODUCT USED FOR UNKNOWN INDICATION
  3. RETEMIC [Concomitant]
     Indication: PRODUCT USED FOR UNKNOWN INDICATION

REACTIONS (2)
  - Erysipelas [Not Recovered/Not Resolved]
  - Injection site erythema [Not Recovered/Not Resolved]
